FAERS Safety Report 9163269 (Version 1)
Quarter: 2013Q1

REPORT INFORMATION
  Report Type: Spontaneous
  Country: US (occurrence: US)
  Receive Date: 20130314
  Receipt Date: 20130314
  Transmission Date: 20140127
  Serious: Yes (Hospitalization)
  Sender: FDA-Public Use
  Company Number: US-BAYER-2013-030330

PATIENT
  Age: 24 Year
  Sex: Female

DRUGS (6)
  1. YASMIN [Suspect]
  2. OCELLA [Suspect]
  3. ADVIL [IBUPROFEN] [Concomitant]
     Indication: BACK PAIN
  4. OXYCODONE [Concomitant]
     Indication: PAIN
     Route: 048
  5. PHENERGAN [PROMETHAZINE] [Concomitant]
  6. ZOFRAN [Concomitant]

REACTIONS (1)
  - Pulmonary embolism [None]
